FAERS Safety Report 18303532 (Version 5)
Quarter: 2021Q1

REPORT INFORMATION
  Report Type: Spontaneous
  Country: JP (occurrence: JP)
  Receive Date: 20200923
  Receipt Date: 20210319
  Transmission Date: 20210419
  Serious: Yes (Other)
  Sender: FDA-Public Use
  Company Number: JP-JNJFOC-20200926253

PATIENT

DRUGS (1)
  1. PREZISTA [Suspect]
     Active Substance: DARUNAVIR ETHANOLATE
     Indication: PRODUCT USED FOR UNKNOWN INDICATION
     Dosage: DOSE UNKNOWN
     Route: 048

REACTIONS (12)
  - Bradycardia [Unknown]
  - Lipids abnormal [Unknown]
  - Osteopenia [Unknown]
  - Protein urine present [Unknown]
  - Osteoporosis [Unknown]
  - Chronic kidney disease [Unknown]
  - Diabetes mellitus [Unknown]
  - Diabetic nephropathy [Unknown]
  - Diarrhoea [Unknown]
  - Drug interaction [Unknown]
  - Rash [Unknown]
  - Adverse reaction [Unknown]
